FAERS Safety Report 7158230-4 (Version None)
Quarter: 2010Q4

REPORT INFORMATION
  Report Type: 
  Country: None (occurrence: None)
  Receive Date: 20101214
  Receipt Date: 20100326
  Transmission Date: 20110411
  Serious: No
  Sender: FDA-Public Use
  Company Number: US-ASTRAZENECA-2010SE13585

PATIENT
  Age: 72 Year
  Sex: Male
  Weight: 88.5 kg

DRUGS (4)
  1. CRESTOR [Suspect]
     Indication: HIGH DENSITY LIPOPROTEIN DECREASED
     Route: 048
     Dates: start: 20100312
  2. PRILOSEC [Concomitant]
     Route: 048
  3. METFORMIN [Concomitant]
  4. AMLODIPINE [Concomitant]

REACTIONS (1)
  - MIDDLE INSOMNIA [None]
